FAERS Safety Report 17764554 (Version 2)
Quarter: 2020Q2

REPORT INFORMATION
  Report Type: Spontaneous
  Country: AU (occurrence: AU)
  Receive Date: 20200511
  Receipt Date: 20200511
  Transmission Date: 20200714
  Serious: Yes (Other)
  Sender: FDA-Public Use
  Company Number: AU-ORION CORPORATION ORION PHARMA-ENTC2020-0144

PATIENT
  Age: 8 Decade
  Sex: Male

DRUGS (1)
  1. STALEVO [Suspect]
     Active Substance: CARBIDOPA\ENTACAPONE\LEVODOPA
     Indication: PARKINSON^S DISEASE
     Dosage: OCCASIONALLY HALVES STALEVO AT NIGHT
     Route: 065

REACTIONS (2)
  - Choking [Unknown]
  - Wrong technique in product usage process [Unknown]
